FAERS Safety Report 8398411 (Version 3)
Quarter: 2015Q1

REPORT INFORMATION
  Report Type: Report from Study
  Country: IE (occurrence: IE)
  Receive Date: 20120209
  Receipt Date: 20150219
  Transmission Date: 20150721
  Serious: Yes (Hospitalization, Other)
  Sender: FDA-Public Use
  Company Number: IE-NOVOPROD-316071

PATIENT
  Age: 5 Year
  Sex: Female
  Weight: 9.8 kg

DRUGS (3)
  1. LEVOTHYROXINE SODIUM. [Concomitant]
     Active Substance: LEVOTHYROXINE SODIUM
     Indication: HYPOTHYROIDISM
     Dosage: 25 ?G, QD
     Route: 048
     Dates: start: 20091028
  2. NORDITROPIN [Suspect]
     Active Substance: SOMATROPIN
     Indication: SILVER-RUSSELL SYNDROME
     Dosage: 0.3 MG, QD
     Route: 065
     Dates: start: 20090707, end: 20100920
  3. NORDITROPIN [Suspect]
     Active Substance: SOMATROPIN
     Indication: SMALL FOR DATES BABY

REACTIONS (2)
  - Sleep apnoea syndrome [Recovered/Resolved]
  - Tonsillar hypertrophy [Recovered/Resolved with Sequelae]

NARRATIVE: CASE EVENT DATE: 20090920
